FAERS Safety Report 7717464-8 (Version None)
Quarter: 2011Q3

REPORT INFORMATION
  Report Type: 
  Country: None (occurrence: None)
  Receive Date: 20110824
  Receipt Date: 20110811
  Transmission Date: 20111222
  Serious: Yes (Hospitalization)
  Sender: FDA-Public Use
  Company Number: UTC-009206

PATIENT
  Age: 83 Year
  Sex: Female

DRUGS (3)
  1. DIURETICS (DIURETICS) [Concomitant]
  2. TYVASO [Suspect]
     Indication: PULMONARY ARTERIAL HYPERTENSION
     Dosage: 18 TO 54 MICROGRAMS (4 IN 1 D), INHALATION
     Route: 055
     Dates: start: 20110531, end: 20110810
  3. TRACLEER [Suspect]
     Dosage: 144 MCG (36 MCG, 4 IN 1 D), INHALATION
     Route: 055
     Dates: start: 20110531, end: 20110810

REACTIONS (4)
  - RESPIRATORY RATE INCREASED [None]
  - CARBON DIOXIDE INCREASED [None]
  - DYSPNOEA [None]
  - HEART RATE INCREASED [None]
